APPROVED DRUG PRODUCT: APLENZIN
Active Ingredient: BUPROPION HYDROBROMIDE
Strength: 348MG
Dosage Form/Route: TABLET, EXTENDED RELEASE;ORAL
Application: N022108 | Product #002
Applicant: BAUSCH HEALTH US LLC
Approved: Apr 23, 2008 | RLD: Yes | RS: No | Type: RX

PATENTS:
Patent 7662407 | Expires: Jun 27, 2026
Patent 7572935 | Expires: Jun 27, 2026
Patent 7585897 | Expires: Jun 27, 2026
Patent 7645802 | Expires: Jun 27, 2026
Patent 7671094 | Expires: Jun 27, 2026
Patent 7241805 | Expires: Jun 27, 2026
Patent 7649019 | Expires: Jun 27, 2026
Patent 7569610 | Expires: Jun 27, 2026